FAERS Safety Report 7837583-5 (Version None)
Quarter: 2011Q4

REPORT INFORMATION
  Report Type: 
  Country: None (occurrence: None)
  Receive Date: 20111024
  Receipt Date: 20110203
  Transmission Date: 20120403
  Serious: No
  Sender: FDA-Public Use
  Company Number: US-ABBOTT-11P-163-0702980-00

PATIENT
  Sex: Female
  Weight: 65.83 kg

DRUGS (1)
  1. LUPRON DEPOT [Suspect]
     Indication: ENDOMETRIOSIS
     Dates: start: 20101201

REACTIONS (6)
  - SUNBURN [None]
  - PRURITUS [None]
  - BURNING SENSATION [None]
  - PAIN OF SKIN [None]
  - RASH PAPULAR [None]
  - RASH MACULAR [None]
